FAERS Safety Report 9271043 (Version 3)
Quarter: 2013Q2

REPORT INFORMATION
  Report Type: Report from Study
  Country: CZ (occurrence: CZ)
  Receive Date: 20130506
  Receipt Date: 20130603
  Transmission Date: 20140414
  Serious: Yes (Hospitalization)
  Sender: FDA-Public Use
  Company Number: CZ-JNJFOC-20130416562

PATIENT
  Age: 53 Year
  Sex: Male
  Weight: 102 kg

DRUGS (9)
  1. USTEKINUMAB [Suspect]
     Indication: PSORIASIS
     Route: 058
     Dates: start: 20130129
  2. USTEKINUMAB [Suspect]
     Indication: PSORIASIS
     Route: 058
     Dates: start: 201201
  3. METHOTREXATE [Concomitant]
  4. METHOTREXATE [Concomitant]
     Dates: start: 201106, end: 20130320
  5. FOLIC ACID [Concomitant]
  6. FLAMEXIN [Concomitant]
  7. AGEN [Concomitant]
  8. ATENOBENE [Concomitant]
  9. GLUCOPHAGE [Concomitant]

REACTIONS (1)
  - Clear cell renal cell carcinoma [Recovered/Resolved]
